FAERS Safety Report 19405208 (Version 3)
Quarter: 2021Q3

REPORT INFORMATION
  Report Type: Spontaneous
  Country: US (occurrence: US)
  Receive Date: 20210611
  Receipt Date: 20210810
  Transmission Date: 20211014
  Serious: Yes (Other)
  Sender: FDA-Public Use
  Company Number: US-RECORDATI RARE DISEASE INC.-2021001029

PATIENT
  Age: 37 Year
  Sex: Female

DRUGS (4)
  1. PANHEMATIN [Suspect]
     Active Substance: HEMIN
     Dosage: 4 MILLIGRAM/KILOGRAM, QD
     Route: 042
     Dates: start: 20190528, end: 20190528
  2. PANHEMATIN [Suspect]
     Active Substance: HEMIN
     Indication: PORPHYRIA ACUTE
     Dosage: 4 MILLIGRAM/KILOGRAM, QD
     Route: 042
     Dates: start: 20200227, end: 20200227
  3. PANHEMATIN [Suspect]
     Active Substance: HEMIN
     Dosage: 4 MILLIGRAM/KILOGRAM, QD
     Route: 042
     Dates: start: 20190313, end: 20190313
  4. PANHEMATIN [Suspect]
     Active Substance: HEMIN
     Dosage: UNK, UNK
     Route: 042

REACTIONS (10)
  - Urticaria [Recovered/Resolved]
  - Pain [Unknown]
  - Product supply issue [Unknown]
  - Off label use [Unknown]
  - Incorrect route of product administration [Unknown]
  - Gastric infection [Unknown]
  - Urticaria [Recovered/Resolved]
  - Porphyria acute [Unknown]
  - Gastrointestinal motility disorder [Unknown]
  - Therapy interrupted [Unknown]

NARRATIVE: CASE EVENT DATE: 20190313
